FAERS Safety Report 17872427 (Version 2)
Quarter: 2020Q3

REPORT INFORMATION
  Report Type: Spontaneous
  Country: US (occurrence: US)
  Receive Date: 20200608
  Receipt Date: 20200710
  Transmission Date: 20201103
  Serious: Yes (Other)
  Sender: FDA-Public Use
  Company Number: US-AKORN PHARMACEUTICALS-2020AKN00727

PATIENT
  Age: 35 Year
  Sex: Female

DRUGS (3)
  1. DEPO?PROVERA [Concomitant]
     Active Substance: MEDROXYPROGESTERONE ACETATE
  2. MYORISAN [Suspect]
     Active Substance: ISOTRETINOIN
     Dosage: 50 MG TOTAL, 1X/DAY
     Dates: start: 20200330, end: 202005
  3. MYORISAN [Suspect]
     Active Substance: ISOTRETINOIN
     Dosage: 50 MG TOTAL, 1X/DAY
     Dates: start: 20200330, end: 202005

REACTIONS (4)
  - Abortion spontaneous [Unknown]
  - Off label use [Recovered/Resolved]
  - Exposure during pregnancy [Recovered/Resolved]
  - Foetal death [Recovered/Resolved]

NARRATIVE: CASE EVENT DATE: 20200330
